FAERS Safety Report 13155729 (Version 1)
Quarter: 2017Q1

REPORT INFORMATION
  Report Type: Spontaneous
  Country: US (occurrence: US)
  Receive Date: 20170126
  Receipt Date: 20170126
  Transmission Date: 20170428
  Serious: No
  Sender: FDA-Public Use
  Company Number: US-ROCHE-1078203

PATIENT
  Sex: Female

DRUGS (26)
  1. VALIUM [Suspect]
     Active Substance: DIAZEPAM
     Indication: PRODUCT USED FOR UNKNOWN INDICATION
     Route: 048
  2. ASPIRIN. [Concomitant]
     Active Substance: ASPIRIN
     Indication: ANGIOPLASTY
     Dosage: 1 DAILY
     Route: 065
  3. CODEINE [Concomitant]
     Active Substance: CODEINE
     Indication: INSOMNIA
  4. ESTROVEN [Concomitant]
     Active Substance: DIETARY SUPPLEMENT
     Indication: MENOPAUSE
  5. CRESTOR [Concomitant]
     Active Substance: ROSUVASTATIN CALCIUM
     Route: 065
  6. WELLBUTRIN SR [Concomitant]
     Active Substance: BUPROPION HYDROCHLORIDE
     Indication: NERVE COMPRESSION
  7. LAMICTAL [Concomitant]
     Active Substance: LAMOTRIGINE
     Route: 065
  8. LOPID [Concomitant]
     Active Substance: GEMFIBROZIL
     Route: 065
  9. MOTRIN [Concomitant]
     Active Substance: IBUPROFEN
     Indication: NECK PAIN
     Dosage: ONCE DAILY UPTO THRICE DAILY
     Route: 065
  10. MOTRIN [Concomitant]
     Active Substance: IBUPROFEN
     Indication: NERVE COMPRESSION
  11. XANAX [Concomitant]
     Active Substance: ALPRAZOLAM
  12. NORVASC [Concomitant]
     Active Substance: AMLODIPINE BESYLATE
     Indication: BLOOD PRESSURE MEASUREMENT
     Route: 065
  13. SYNTHROID [Concomitant]
     Active Substance: LEVOTHYROXINE SODIUM
     Indication: NODULE
     Dosage: DOSAGE: ONE DAILY
     Route: 065
  14. WELLBUTRIN SR [Concomitant]
     Active Substance: BUPROPION HYDROCHLORIDE
     Indication: INTERVERTEBRAL DISC PROTRUSION
  15. DOCUSATE CALCIUM. [Concomitant]
     Active Substance: DOCUSATE CALCIUM
     Indication: CONSTIPATION
     Route: 065
  16. PLAVIX [Concomitant]
     Active Substance: CLOPIDOGREL BISULFATE
  17. ABILIFY [Concomitant]
     Active Substance: ARIPIPRAZOLE
     Route: 065
  18. ACIPHEX [Concomitant]
     Active Substance: RABEPRAZOLE SODIUM
     Indication: GASTROOESOPHAGEAL REFLUX DISEASE
     Route: 065
  19. ATELVIA [Concomitant]
     Active Substance: RISEDRONATE SODIUM
     Route: 065
  20. ALENDRONATE [Concomitant]
     Active Substance: ALENDRONATE SODIUM
     Indication: BONE LOSS
     Route: 065
  21. EFFEXOR [Concomitant]
     Active Substance: VENLAFAXINE HYDROCHLORIDE
     Route: 065
  22. MOTRIN [Concomitant]
     Active Substance: IBUPROFEN
     Indication: BACK PAIN
  23. MOTRIN [Concomitant]
     Active Substance: IBUPROFEN
     Indication: INTERVERTEBRAL DISC PROTRUSION
  24. COENZYME Q-10 [Concomitant]
     Dosage: 1 DAILY FOR HEART
     Route: 065
  25. HYDRODIURIL [Concomitant]
     Active Substance: HYDROCHLOROTHIAZIDE
     Route: 065
  26. WELLBUTRIN SR [Concomitant]
     Active Substance: BUPROPION HYDROCHLORIDE
     Indication: NECK PAIN
     Dosage: UPTO THREE TIMES DAILY
     Route: 065

REACTIONS (1)
  - Anger [Unknown]
